FAERS Safety Report 22338921 (Version 1)
Quarter: 2023Q2

REPORT INFORMATION
  Report Type: Spontaneous
  Country: US (occurrence: US)
  Receive Date: 20230518
  Receipt Date: 20230518
  Transmission Date: 20230722
  Serious: Yes (Hospitalization, Other)
  Sender: FDA-Public Use
  Company Number: US-BRISTOL-MYERS SQUIBB COMPANY-2023-069206

PATIENT
  Age: 84 Year
  Sex: Male
  Weight: 135.3 kg

DRUGS (2)
  1. REVLIMID [Suspect]
     Active Substance: LENALIDOMIDE
     Indication: Plasma cell myeloma
     Dosage: DOSE : 10 MG;     FREQ : 14 DAYS ON 7 DAYS OFF.
     Route: 048
     Dates: start: 20211118
  2. REVLIMID [Suspect]
     Active Substance: LENALIDOMIDE
     Dosage: DOSE : 10 MG;     FREQ : 14 DAYS ON 7 DAYS OFF.
     Route: 048
     Dates: start: 20230420

REACTIONS (15)
  - Acute myocardial infarction [Unknown]
  - Off label use [Unknown]
  - Cardiac failure congestive [Unknown]
  - Type 2 diabetes mellitus [Unknown]
  - Anaemia [Unknown]
  - Hypotension [Unknown]
  - Acute kidney injury [Unknown]
  - Thrombocytopenia [Unknown]
  - Septic shock [Unknown]
  - Pneumonia [Unknown]
  - Prostate cancer [Unknown]
  - Metastases to bone [Unknown]
  - Cerebral infarction [Unknown]
  - Cerebellar infarction [Unknown]
  - Atrial fibrillation [Unknown]
